FAERS Safety Report 10215001 (Version 1)
Quarter: 2014Q2

REPORT INFORMATION
  Report Type: Spontaneous
  Country: US (occurrence: US)
  Receive Date: 20140603
  Receipt Date: 20140603
  Transmission Date: 20141212
  Serious: No
  Sender: FDA-Public Use
  Company Number: US-ENDO PHARMACEUTICALS INC.-SPLN20140049

PATIENT
  Age: 12 Year
  Sex: Male

DRUGS (1)
  1. SUPPRELIN LA [Suspect]
     Indication: PRECOCIOUS PUBERTY
     Route: 058
     Dates: start: 201207, end: 20140418

REACTIONS (4)
  - Hypersomnia [Not Recovered/Not Resolved]
  - Incorrect drug administration duration [Recovered/Resolved]
  - Headache [Recovered/Resolved]
  - Device breakage [Recovered/Resolved]
